FAERS Safety Report 9044917 (Version 1)
Quarter: 2013Q1

REPORT INFORMATION
  Report Type: Report from Study
  Country: JP (occurrence: JP)
  Receive Date: 20130130
  Receipt Date: 20130130
  Transmission Date: 20140127
  Serious: Yes (Other)
  Sender: FDA-Public Use
  Company Number: JP-GLAXOSMITHKLINE-B0860759A

PATIENT
  Age: 57 None
  Sex: Female
  Weight: 51 kg

DRUGS (9)
  1. REVOLADE [Suspect]
     Indication: IDIOPATHIC THROMBOCYTOPENIC PURPURA
     Route: 048
     Dates: start: 20110302, end: 20110315
  2. REVOLADE [Suspect]
     Indication: IDIOPATHIC THROMBOCYTOPENIC PURPURA
     Route: 048
     Dates: start: 20110316, end: 20110412
  3. REVOLADE [Suspect]
     Indication: IDIOPATHIC THROMBOCYTOPENIC PURPURA
     Route: 048
     Dates: start: 20110413, end: 20110720
  4. SEIBULE [Suspect]
     Route: 048
  5. DIOVAN [Concomitant]
     Route: 048
  6. ONEALFA [Concomitant]
     Route: 048
  7. PREDONINE [Concomitant]
     Indication: IDIOPATHIC THROMBOCYTOPENIC PURPURA
     Route: 048
  8. DIART [Concomitant]
     Route: 048
  9. URSO [Concomitant]
     Route: 048

REACTIONS (2)
  - Cerebral infarction [Recovering/Resolving]
  - Diarrhoea [Recovering/Resolving]
